FAERS Safety Report 19981159 (Version 3)
Quarter: 2024Q2

REPORT INFORMATION
  Report Type: Spontaneous
  Country: US (occurrence: US)
  Receive Date: 20211021
  Receipt Date: 20240430
  Transmission Date: 20240715
  Serious: Yes (Hospitalization, Disabling, Other)
  Sender: FDA-Public Use
  Company Number: US-PFIZER INC-202100920512

PATIENT
  Age: 61 Year
  Sex: Female

DRUGS (18)
  1. XELJANZ [Suspect]
     Active Substance: TOFACITINIB CITRATE
     Indication: Rheumatoid arthritis
     Dosage: 5 MG
  2. XELJANZ [Suspect]
     Active Substance: TOFACITINIB CITRATE
     Dosage: 5 MG, 2X/DAY
  3. TRAMADOL [Concomitant]
     Active Substance: TRAMADOL\TRAMADOL HYDROCHLORIDE
  4. HYDROXYCHLOROQUINE DIPHOSPHATE [Concomitant]
     Active Substance: HYDROXYCHLOROQUINE DIPHOSPHATE
  5. LYRICA [Concomitant]
     Active Substance: PREGABALIN
  6. COLLAGEN [Concomitant]
     Active Substance: COLLAGEN
  7. METOPROLOL [Concomitant]
     Active Substance: METOPROLOL
  8. SENOKOT [Concomitant]
     Active Substance: SENNOSIDES
  9. RABEPRAZOLE [Concomitant]
     Active Substance: RABEPRAZOLE
  10. TORSEMIDE [Concomitant]
     Active Substance: TORSEMIDE
  11. LORATADINE [Concomitant]
     Active Substance: LORATADINE
  12. FLUTICASONE [Concomitant]
     Active Substance: FLUTICASONE
  13. SIMVASTATIN [Concomitant]
     Active Substance: SIMVASTATIN
  14. KLOR-CON M10 [Concomitant]
     Active Substance: POTASSIUM CHLORIDE
  15. CRANBERRY [Concomitant]
     Active Substance: CRANBERRY
  16. MAGNESIUM [Concomitant]
     Active Substance: MAGNESIUM
  17. NITROGLYCERIN [Concomitant]
     Active Substance: NITROGLYCERIN
  18. POTASSIUM [Concomitant]
     Active Substance: POTASSIUM

REACTIONS (6)
  - COVID-19 [Unknown]
  - Myocardial infarction [Unknown]
  - Gait inability [Unknown]
  - Fibromyalgia [Unknown]
  - Illness [Unknown]
  - Arthralgia [Unknown]
